FAERS Safety Report 4565447-1 (Version None)
Quarter: 2005Q1

REPORT INFORMATION
  Report Type: 
  Country: None (occurrence: None)
  Receive Date: 20050131
  Receipt Date: 20041206
  Transmission Date: 20050727
  Serious: Yes (Other)
  Sender: FDA-Public Use
  Company Number: US-MERCK-0412USA00690

PATIENT
  Sex: Male

DRUGS (1)
  1. VYTORIN [Suspect]
     Route: 048

REACTIONS (3)
  - ANGIONEUROTIC OEDEMA [None]
  - LARYNGEAL OEDEMA [None]
  - LARYNGOSPASM [None]
